FAERS Safety Report 10955560 (Version 1)
Quarter: 2015Q1

REPORT INFORMATION
  Report Type: Spontaneous
  Country: FR (occurrence: FR)
  Receive Date: 20150326
  Receipt Date: 20150326
  Transmission Date: 20150721
  Serious: Yes (Hospitalization)
  Sender: FDA-Public Use
  Company Number: FR-ASTRAZENECA-2015SE25861

PATIENT
  Age: 88 Year
  Sex: Female

DRUGS (19)
  1. TRIATEC [Suspect]
     Active Substance: RAMIPRIL
     Route: 065
     Dates: start: 20140911, end: 20140911
  2. LASILIX [Suspect]
     Active Substance: FUROSEMIDE
     Route: 065
  3. TAHOR [Concomitant]
     Active Substance: ATORVASTATIN CALCIUM
  4. XARELTO [Concomitant]
     Active Substance: RIVAROXABAN
  5. INEXIUM [Suspect]
     Active Substance: ESOMEPRAZOLE
     Route: 048
  6. BISOPROLOL [Suspect]
     Active Substance: BISOPROLOL
     Route: 065
  7. BISOPROLOL [Suspect]
     Active Substance: BISOPROLOL
     Route: 065
     Dates: start: 20140911, end: 20140911
  8. TAHOR [Concomitant]
     Active Substance: ATORVASTATIN CALCIUM
     Dates: start: 20140911, end: 20140911
  9. TRIATEC [Suspect]
     Active Substance: RAMIPRIL
     Route: 065
  10. ALDACTAZINE [Suspect]
     Active Substance: ALTHIAZIDE\SPIRONOLACTONE
     Route: 065
     Dates: start: 20140911, end: 20140911
  11. DIFFU K [Concomitant]
     Active Substance: POTASSIUM CHLORIDE
  12. AMLODIPINE [Suspect]
     Active Substance: AMLODIPINE BESYLATE
     Route: 065
     Dates: start: 20140911, end: 20140911
  13. ALDACTAZINE [Suspect]
     Active Substance: ALTHIAZIDE\SPIRONOLACTONE
     Route: 065
  14. XARELTO [Concomitant]
     Active Substance: RIVAROXABAN
     Dates: start: 20140911, end: 20140911
  15. AMLODIPINE [Suspect]
     Active Substance: AMLODIPINE BESYLATE
     Route: 065
  16. KARDEGIC [Concomitant]
     Active Substance: ASPIRIN LYSINE
  17. DIFFU K [Concomitant]
     Active Substance: POTASSIUM CHLORIDE
     Dates: start: 20140911, end: 20140911
  18. INEXIUM [Suspect]
     Active Substance: ESOMEPRAZOLE
     Route: 048
     Dates: start: 20140911, end: 20140911
  19. LASILIX [Suspect]
     Active Substance: FUROSEMIDE
     Route: 065
     Dates: start: 20140911, end: 20140911

REACTIONS (4)
  - Accidental overdose [Unknown]
  - Bradycardia [Recovered/Resolved]
  - Hypotension [Recovered/Resolved]
  - Acute kidney injury [Recovered/Resolved]

NARRATIVE: CASE EVENT DATE: 20140911
